FAERS Safety Report 16455719 (Version 1)
Quarter: 2019Q2

REPORT INFORMATION
  Report Type: Spontaneous
  Country: GB (occurrence: GB)
  Receive Date: 20190620
  Receipt Date: 20190620
  Transmission Date: 20190711
  Serious: Yes (Disabling)
  Sender: FDA-Public Use
  Company Number: GB-SUN PHARMACEUTICAL INDUSTRIES LTD-2007RR-06796

PATIENT
  Age: 21 Year
  Sex: Male

DRUGS (1)
  1. CIPROFLOXACIN. [Suspect]
     Active Substance: CIPROFLOXACIN
     Indication: GASTROINTESTINAL INFECTION
     Dosage: 500 MG, BID
     Route: 048

REACTIONS (5)
  - Arthralgia [Recovering/Resolving]
  - C-reactive protein increased [Unknown]
  - Joint swelling [Recovering/Resolving]
  - Red blood cell sedimentation rate increased [Unknown]
  - Joint stiffness [Recovering/Resolving]
